FAERS Safety Report 24201858 (Version 1)
Quarter: 2024Q3

REPORT INFORMATION
  Report Type: Spontaneous
  Country: SE (occurrence: SE)
  Receive Date: 20240812
  Receipt Date: 20240812
  Transmission Date: 20241017
  Serious: Yes (Other)
  Sender: TEVA
  Company Number: None

PATIENT
  Age: 31 Year
  Sex: Male

DRUGS (9)
  1. MIRTAZAPINE [Suspect]
     Active Substance: MIRTAZAPINE
     Indication: Product used for unknown indication
     Route: 065
  2. ATARAX [Concomitant]
     Active Substance: HYDROXYZINE HYDROCHLORIDE
     Indication: Product used for unknown indication
     Route: 065
  3. VENLAFAXINE [Concomitant]
     Active Substance: VENLAFAXINE HYDROCHLORIDE
     Indication: Product used for unknown indication
     Route: 065
     Dates: start: 202405
  4. BEVIPLEX FORTE [Concomitant]
     Indication: Product used for unknown indication
     Route: 065
     Dates: start: 20230703
  5. BEVIPLEX FORTE [Concomitant]
     Indication: Product used for unknown indication
     Route: 065
     Dates: start: 20230703
  6. BEVIPLEX FORTE [Concomitant]
     Indication: Product used for unknown indication
     Route: 065
     Dates: start: 20230703
  7. BEVIPLEX FORTE [Concomitant]
     Indication: Product used for unknown indication
     Route: 065
     Dates: start: 20230703
  8. SILDENAFIL 1A PHARMA [Concomitant]
     Indication: Product used for unknown indication
     Dosage: TIME INTERVAL: AS NECESSARY: SILDENAFIL 1A PHARMA
     Route: 065
     Dates: start: 20221206
  9. SILDENAFIL 1A PHARMA [Concomitant]
     Indication: Product used for unknown indication
     Dosage: TIME INTERVAL: AS NECESSARY: SILDENAFIL 1A PHARMA
     Route: 065
     Dates: start: 20221206

REACTIONS (3)
  - Weight increased [Unknown]
  - Binge eating [Unknown]
  - Increased appetite [Unknown]

NARRATIVE: CASE EVENT DATE: 20240506
